FAERS Safety Report 8949876 (Version 1)
Quarter: 2012Q4

REPORT INFORMATION
  Report Type: 
  Country: CA (occurrence: CA)
  Receive Date: 20121206
  Receipt Date: 20121206
  Transmission Date: 20130627
  Serious: Yes (Disabling)
  Sender: FDA-Public Use
  Company Number: CA-ASTRAZENECA-2012SE89655

PATIENT
  Age: 70 Year
  Sex: Male

DRUGS (10)
  1. CRESTOR [Suspect]
     Route: 048
  2. ATENOL [Concomitant]
     Route: 048
  3. COVERSYL [Concomitant]
     Route: 048
  4. DIAZEPAM [Concomitant]
     Route: 048
  5. FISH OIL [Concomitant]
  6. HCTZ [Concomitant]
     Route: 048
  7. MULTIVITAMINE [Concomitant]
  8. NAPROXEN [Concomitant]
  9. TERAZOSIN [Concomitant]
     Route: 048
  10. VITAMIN C [Concomitant]

REACTIONS (2)
  - Fall [Not Recovered/Not Resolved]
  - Pain in extremity [Not Recovered/Not Resolved]
